FAERS Safety Report 9259071 (Version 1)
Quarter: 2013Q2

REPORT INFORMATION
  Report Type: Report from Study
  Country: US (occurrence: US)
  Receive Date: 20130426
  Receipt Date: 20130426
  Transmission Date: 20140414
  Serious: Yes (Other)
  Sender: FDA-Public Use
  Company Number: US-PURDUE-USA-2013-0101331

PATIENT
  Age: 70 Year
  Sex: Female

DRUGS (2)
  1. OXYCONTIN (NDA 22-272) [Suspect]
     Indication: PRODUCT USED FOR UNKNOWN INDICATION
     Dosage: 80 MG, 2-3 TIMES DAILY
     Route: 048
  2. OXYCONTIN (NDA 22-272) [Suspect]
     Dosage: 20 MG,  2-3 TIMES DAILY
     Route: 048

REACTIONS (2)
  - Myocardial infarction [Recovered/Resolved]
  - Arterial occlusive disease [Unknown]
